FAERS Safety Report 9612007 (Version 2)
Quarter: 2013Q4

REPORT INFORMATION
  Report Type: Report from Study
  Country: BR (occurrence: BR)
  Receive Date: 20131010
  Receipt Date: 20131010
  Transmission Date: 20140711
  Serious: Yes (Life-Threatening, Hospitalization)
  Sender: FDA-Public Use
  Company Number: BR-INCYTE CORPORATION-2013IN002231

PATIENT
  Age: 85 Year
  Sex: Male

DRUGS (1)
  1. INC424 [Suspect]
     Indication: MYELOFIBROSIS
     Dosage: 5 MG, UNK
     Route: 048
     Dates: start: 20130621, end: 20130916

REACTIONS (2)
  - Dehydration [Unknown]
  - Asthenia [Not Recovered/Not Resolved]
